FAERS Safety Report 25362284 (Version 2)
Quarter: 2025Q4

REPORT INFORMATION
  Report Type: Spontaneous
  Country: US (occurrence: US)
  Receive Date: 20250527
  Receipt Date: 20251013
  Transmission Date: 20260117
  Serious: Yes (Hospitalization)
  Sender: BAYER HEALTHCARE PHARMACEUTICALS INC.
  Company Number: US-BAYER-2025A067714

PATIENT
  Age: 68 Year
  Sex: Female

DRUGS (7)
  1. ADEMPAS [Suspect]
     Active Substance: RIOCIGUAT
     Indication: Pulmonary hypertension
     Dosage: 0.5 MG, TID
     Route: 048
     Dates: start: 20160405
  2. DUONEB [Concomitant]
     Active Substance: ALBUTEROL SULFATE\IPRATROPIUM BROMIDE
  3. EZETIMIBE [Concomitant]
     Active Substance: EZETIMIBE
  4. CALCITRIOL [Concomitant]
     Active Substance: CALCITRIOL
  5. VITAMIN E [Concomitant]
     Active Substance: .ALPHA.-TOCOPHEROL
  6. VITAMINS [Concomitant]
     Active Substance: VITAMINS
  7. ACETAMINOPHEN [Concomitant]
     Active Substance: ACETAMINOPHEN

REACTIONS (4)
  - Cardiac failure chronic [None]
  - Cellulitis [None]
  - Cardiac failure chronic [None]
  - Acute respiratory failure [None]

NARRATIVE: CASE EVENT DATE: 20250512
